FAERS Safety Report 6456308-1 (Version None)
Quarter: 2009Q4

REPORT INFORMATION
  Report Type: 
  Country: None (occurrence: None)
  Receive Date: 20091124
  Receipt Date: 20091124
  Transmission Date: 20100525
  Serious: Yes (Disabling)
  Sender: FDA-Public Use
  Company Number: None

PATIENT
  Age: 42 Year
  Sex: Female
  Weight: 83.9154 kg

DRUGS (1)
  1. MIRENA [Suspect]
     Indication: CONTRACEPTION
     Dates: start: 20060801, end: 20091130

REACTIONS (8)
  - ABDOMINAL DISTENSION [None]
  - ANXIETY [None]
  - BREAST PAIN [None]
  - DEPRESSION [None]
  - LOSS OF CONSCIOUSNESS [None]
  - MEDICAL DEVICE COMPLICATION [None]
  - PAIN [None]
  - WEIGHT INCREASED [None]
